FAERS Safety Report 9320893 (Version 2)
Quarter: 2013Q3

REPORT INFORMATION
  Report Type: Spontaneous
  Country: JP (occurrence: JP)
  Receive Date: 20130531
  Receipt Date: 20130711
  Transmission Date: 20140515
  Serious: Yes (Hospitalization)
  Sender: FDA-Public Use
  Company Number: PHHY2013JP032755

PATIENT
  Age: 80 Year
  Sex: Female
  Weight: 44 kg

DRUGS (9)
  1. RASILEZ [Suspect]
     Indication: HYPERTENSION
     Dosage: 150 MG, DAILY
     Route: 048
  2. JZOLOFT [Concomitant]
     Dosage: 25 MG, UNK
     Route: 048
  3. TAKEPRON [Concomitant]
     Dosage: 15 MG, UNK
     Route: 048
  4. ONEALFA [Concomitant]
     Dosage: 1 UG, UNK
     Route: 048
  5. LIPITOR [Concomitant]
     Dosage: 10 MG, UNK
     Route: 048
  6. CELECOX [Concomitant]
     Dosage: 200 MG, UNK
     Route: 048
  7. RINPRAL [Concomitant]
     Dosage: 100 MG, UNK
     Route: 048
  8. GLAKAY [Concomitant]
     Dosage: 45 MG, UNK
     Route: 048
  9. SULPIRIDE [Concomitant]
     Dosage: 100 MG, UNK
     Route: 048

REACTIONS (1)
  - Hyponatraemia [Recovered/Resolved]
